FAERS Safety Report 5096209-7 (Version None)
Quarter: 2006Q3

REPORT INFORMATION
  Report Type: 
  Country: None (occurrence: None)
  Receive Date: 20060831
  Receipt Date: 20060816
  Transmission Date: 20061208
  Serious: Yes (Life-Threatening)
  Sender: FDA-Public Use
  Company Number: 2006S1006586

PATIENT
  Age: 36 Year
  Sex: Male
  Weight: 114.3065 kg

DRUGS (5)
  1. FENTANYL TRANSDERMAL SYSTEM [Suspect]
     Indication: BACK PAIN
     Dosage: 50 UG/HR; Q3D; TDER
     Route: 062
     Dates: start: 20060711
  2. FENTANYL TRANSDERMAL SYSTEM [Suspect]
     Indication: NECK PAIN
     Dosage: 50 UG/HR; Q3D; TDER
     Route: 062
     Dates: start: 20060711
  3. FENTANYL TRANSDERMAL SYSTEM [Suspect]
     Indication: PAIN
     Dosage: 50 UG/HR; Q3D; TDER
     Route: 062
     Dates: start: 20060711
  4. ZOLPIDEM TARTRATE [Concomitant]
  5. CARISOPRODOL [Concomitant]

REACTIONS (6)
  - APPLICATION SITE DERMATITIS [None]
  - DIARRHOEA [None]
  - DISORIENTATION [None]
  - NAUSEA [None]
  - PHARMACEUTICAL PRODUCT COMPLAINT [None]
  - VOMITING [None]
